FAERS Safety Report 4901274-0 (Version None)
Quarter: 2006Q1

REPORT INFORMATION
  Report Type: 
  Country: None (occurrence: None)
  Receive Date: 20060206
  Receipt Date: 20060131
  Transmission Date: 20060701
  Serious: Yes (Other)
  Sender: FDA-Public Use
  Company Number: PHBS2006BR01740

PATIENT
  Age: 11 Year
  Sex: Male
  Weight: 46 kg

DRUGS (1)
  1. TRILEPTAL [Suspect]
     Indication: CONVULSION
     Dosage: 5 ML, BID
     Route: 048
     Dates: start: 20010101

REACTIONS (4)
  - ANAEMIA [None]
  - ANOREXIA [None]
  - GLAUCOMA [None]
  - MEMORY IMPAIRMENT [None]
